FAERS Safety Report 4370287-2 (Version None)
Quarter: 2004Q2

REPORT INFORMATION
  Report Type: 
  Country: None (occurrence: None)
  Receive Date: 20040603
  Receipt Date: 20040406
  Transmission Date: 20050107
  Serious: No
  Sender: FDA-Public Use
  Company Number: US-BRISTOL-MYERS SQUIBB COMPANY-12552881

PATIENT
  Sex: Female

DRUGS (2)
  1. ABILIFY [Suspect]
  2. ZONEGRAN [Concomitant]

REACTIONS (1)
  - DYSKINESIA [None]
